FAERS Safety Report 25766982 (Version 1)
Quarter: 2025Q3

REPORT INFORMATION
  Report Type: Spontaneous
  Country: US (occurrence: None)
  Receive Date: 20250904
  Receipt Date: 20250904
  Transmission Date: 20251021
  Serious: Yes (Hospitalization, Other)
  Sender: FDA-CTU
  Company Number: None

PATIENT
  Age: 51 Year
  Sex: Male
  Weight: 79 kg

DRUGS (5)
  1. SULFAMETHOXAZOLE\TRIMETHOPRIM [Suspect]
     Active Substance: SULFAMETHOXAZOLE\TRIMETHOPRIM
     Indication: Urinary tract infection
     Dosage: FREQUENCY : TWICE A DAY;?
     Route: 048
     Dates: start: 20250703, end: 20250710
  2. sulfamethoxazole-trimethoprim 800-160mg BID [Concomitant]
     Dates: start: 20250703
  3. levetiracetam, 500 mg BID [Concomitant]
  4. lisinopril, 20 mg Daily [Concomitant]
  5. pantoprazole, 20 mg BID [Concomitant]

REACTIONS (5)
  - Blood sodium decreased [None]
  - Condition aggravated [None]
  - Liver function test increased [None]
  - Groin pain [None]
  - Drug hypersensitivity [None]

NARRATIVE: CASE EVENT DATE: 20250703
